FAERS Safety Report 15423169 (Version 1)
Quarter: 2018Q3

REPORT INFORMATION
  Report Type: Spontaneous
  Country: US (occurrence: US)
  Receive Date: 20180925
  Receipt Date: 20180925
  Transmission Date: 20181010
  Serious: No
  Sender: FDA-Public Use
  Company Number: US-TEVA-2018-US-956233

PATIENT
  Age: 25 Year
  Sex: Female

DRUGS (2)
  1. PREDNISONE. [Suspect]
     Active Substance: PREDNISONE
     Indication: AUTOIMMUNE DISORDER
     Dosage: FORM STRENGTH: 10
     Dates: start: 20180905, end: 20180909
  2. PREDNISONE. [Suspect]
     Active Substance: PREDNISONE
     Indication: LUPUS-LIKE SYNDROME

REACTIONS (6)
  - Blood calcium decreased [Unknown]
  - Blood potassium decreased [Unknown]
  - Blood sodium decreased [Unknown]
  - Palpitations [Recovered/Resolved]
  - Swelling [Recovered/Resolved]
  - Gait inability [Unknown]

NARRATIVE: CASE EVENT DATE: 20180908
